FAERS Safety Report 12200633 (Version 1)
Quarter: 2016Q1

REPORT INFORMATION
  Report Type: Spontaneous
  Country: US (occurrence: US)
  Receive Date: 20160322
  Receipt Date: 20160322
  Transmission Date: 20160526
  Serious: Yes (Hospitalization, Other)
  Sender: FDA-Public Use
  Company Number: US-STANDARD HOMEOPATHIC COMPANY-1049426

PATIENT
  Sex: Female

DRUGS (4)
  1. CANTHARIS 6X [Suspect]
     Active Substance: LYTTA VESICATORIA
     Route: 048
  2. SPIGELIA 30X [Suspect]
     Active Substance: SPIGELIA ANTHELMIA
     Indication: FACIAL NERVE DISORDER
     Route: 048
  3. MAGNESIUM PHOSPHATE [Suspect]
     Active Substance: MAGNESIUM PHOSPHATE, TRIBASIC, PENTAHYDRATE
     Route: 048
  4. ACONITUM NAPELLUS 30X [Suspect]
     Active Substance: ACONITUM NAPELLUS
     Route: 048

REACTIONS (6)
  - Liver disorder [None]
  - Abdominal pain upper [None]
  - Fall [None]
  - Tremor [Unknown]
  - Nausea [None]
  - Infection [None]
